FAERS Safety Report 20176209 (Version 1)
Quarter: 2021Q4

REPORT INFORMATION
  Report Type: Spontaneous
  Country: US (occurrence: US)
  Receive Date: 20211213
  Receipt Date: 20211213
  Transmission Date: 20220303
  Serious: Yes (Other)
  Sender: FDA-Public Use
  Company Number: US-ORG100016242-2021000862

PATIENT
  Sex: Female

DRUGS (2)
  1. EXPAREL [Suspect]
     Active Substance: BUPIVACAINE
     Dosage: NOT PROVIDED
     Route: 050
  2. MORPHINE [Concomitant]
     Active Substance: MORPHINE
     Dosage: NOT PROVIDED
     Route: 037

REACTIONS (1)
  - Amniotic cavity infection [Unknown]
